FAERS Safety Report 4986904-X (Version None)
Quarter: 2006Q2

REPORT INFORMATION
  Report Type: 
  Country: None (occurrence: None)
  Receive Date: 20060501
  Receipt Date: 20060419
  Transmission Date: 20061013
  Serious: Yes (Other)
  Sender: FDA-Public Use
  Company Number: PHBS2006SE05671

PATIENT
  Age: 75 Year
  Sex: Male

DRUGS (9)
  1. AREDIA [Suspect]
     Indication: LYMPHOPLASMACYTOID LYMPHOMA/IMMUNOCYTOMA
     Route: 065
     Dates: start: 20000101
  2. ATROVENT [Concomitant]
     Route: 065
  3. WARAN [Concomitant]
     Route: 065
  4. KALITABS [Concomitant]
     Route: 065
  5. FUROSEMIDE [Concomitant]
     Route: 065
  6. LOSEC [Concomitant]
     Route: 065
  7. INSULIN [Concomitant]
     Route: 065
  8. ACETYLCYSTEINE [Concomitant]
     Route: 065
  9. ZOMETA [Suspect]
     Indication: LYMPHOPLASMACYTOID LYMPHOMA/IMMUNOCYTOMA
     Route: 065
     Dates: start: 20020301

REACTIONS (1)
  - OSTEONECROSIS [None]
